FAERS Safety Report 6097980-8 (Version None)
Quarter: 2009Q1

REPORT INFORMATION
  Report Type: 
  Country: None (occurrence: None)
  Receive Date: 20090227
  Receipt Date: 20090217
  Transmission Date: 20090719
  Serious: Yes (Other)
  Sender: FDA-Public Use
  Company Number: US-SANOFI-SYNTHELABO-A03200900449

PATIENT
  Sex: Female
  Weight: 57.6 kg

DRUGS (6)
  1. AMBIEN CR [Suspect]
     Indication: INSOMNIA RELATED TO ANOTHER MENTAL CONDITION
     Route: 048
     Dates: start: 20081201
  2. AMBIEN CR [Interacting]
     Indication: SLEEP DISORDER
     Route: 048
     Dates: start: 20081201
  3. CYMBALTA [Interacting]
     Indication: DEPRESSION
     Route: 048
     Dates: start: 20081201
  4. CLONAZEPAM [Concomitant]
     Indication: PANIC DISORDER
     Dosage: 1 TO 2 TABLETS DAILY
     Route: 048
     Dates: start: 20081101
  5. HYDROCODONE + ACETAMINOPHEN (APAP) [Concomitant]
     Indication: BACK INJURY
     Dosage: 10/500 MG THREE TIMES DAILY
     Route: 048
     Dates: start: 20080101
  6. MS CONTIN [Concomitant]
     Indication: BACK INJURY
     Route: 048
     Dates: start: 20081201

REACTIONS (11)
  - AGGRESSION [None]
  - AGITATION [None]
  - DEPRESSION [None]
  - DRUG INEFFECTIVE [None]
  - DRUG INTERACTION [None]
  - MOOD ALTERED [None]
  - MOOD SWINGS [None]
  - MUSCULOSKELETAL STIFFNESS [None]
  - OEDEMA PERIPHERAL [None]
  - RASH [None]
  - RESPIRATORY ARREST [None]
